FAERS Safety Report 11701555 (Version 1)
Quarter: 2015Q4

REPORT INFORMATION
  Report Type: Spontaneous
  Country: SE (occurrence: SE)
  Receive Date: 20151105
  Receipt Date: 20151105
  Transmission Date: 20160304
  Serious: Yes (Other)
  Sender: FDA-Public Use
  Company Number: SE-PFIZER INC-2015373113

PATIENT
  Age: 60 Year
  Sex: Female

DRUGS (1)
  1. OESTRING [Suspect]
     Active Substance: ESTRADIOL
     Indication: VAGINAL DISORDER
     Dosage: 7.5 ?G/24H
     Route: 067
     Dates: start: 20151014, end: 20151016

REACTIONS (8)
  - Migraine [Not Recovered/Not Resolved]
  - Dizziness [Recovered/Resolved]
  - Vaginal haemorrhage [Recovered/Resolved]
  - Peripheral swelling [Recovered/Resolved]
  - Fatigue [Not Recovered/Not Resolved]
  - Nausea [Recovered/Resolved]
  - Hyperhidrosis [Not Recovered/Not Resolved]
  - Dyspnoea [Recovered/Resolved]

NARRATIVE: CASE EVENT DATE: 20151016
